FAERS Safety Report 5291829-9 (Version None)
Quarter: 2007Q2

REPORT INFORMATION
  Report Type: 
  Country: None (occurrence: None)
  Receive Date: 20070410
  Receipt Date: 20070404
  Transmission Date: 20071010
  Serious: Yes (Life-Threatening, Hospitalization)
  Sender: FDA-Public Use
  Company Number: BE-BAYER-200711907GDS

PATIENT
  Age: 62 Year
  Sex: Female
  Weight: 62 kg

DRUGS (17)
  1. SORAFENIB [Suspect]
     Indication: NON-SMALL CELL LUNG CANCER
     Dosage: TOTAL DAILY DOSE: 800 MG
     Route: 048
     Dates: start: 20070328, end: 20070329
  2. GEMCITABINE [Suspect]
     Indication: NON-SMALL CELL LUNG CANCER
     Route: 065
  3. CISPLATIN VS PLACEBO [Suspect]
     Indication: NON-SMALL CELL LUNG CANCER
     Route: 065
  4. CLEXANE [Concomitant]
     Indication: PROPHYLAXIS
     Route: 058
     Dates: start: 20070316, end: 20070329
  5. MOVICOL (KCL+NACL+NAHCO3) [Concomitant]
     Indication: CONSTIPATION
     Route: 048
     Dates: start: 20070318, end: 20070329
  6. CONTRAMAL RETARD [Concomitant]
     Indication: BACK PAIN
     Route: 048
     Dates: start: 20070318, end: 20070329
  7. XANAX [Concomitant]
     Indication: NERVOUSNESS
     Route: 048
     Dates: start: 20070320, end: 20070329
  8. DAFALGAN FORTE [Concomitant]
     Indication: BACK PAIN
     Route: 048
     Dates: start: 20070322, end: 20070329
  9. ASAFLOW [Concomitant]
     Indication: DRUG USE FOR UNKNOWN INDICATION
     Route: 048
     Dates: start: 20070328, end: 20070329
  10. ASAFLOW [Concomitant]
     Route: 048
     Dates: start: 20070327, end: 20070327
  11. INDOCID-RETARD [Concomitant]
     Indication: BACK PAIN
     Route: 048
     Dates: start: 20070327, end: 20070329
  12. ZANTAC [Concomitant]
     Indication: PROPHYLAXIS
     Route: 048
     Dates: start: 20070330
  13. ZANTAC [Concomitant]
     Route: 048
     Dates: start: 20070329, end: 20070329
  14. LASIX [Concomitant]
     Indication: DRUG USE FOR UNKNOWN INDICATION
     Route: 042
     Dates: start: 20070328, end: 20070329
  15. ALDACTONE [Concomitant]
     Indication: DRUG USE FOR UNKNOWN INDICATION
     Route: 048
     Dates: start: 20070329, end: 20070329
  16. TAZOCIN [Concomitant]
     Indication: INFECTION
     Route: 042
     Dates: start: 20070321, end: 20070327
  17. ASPEGIC 1000 [Concomitant]
     Indication: BACK PAIN
     Route: 042
     Dates: start: 20070330

REACTIONS (1)
  - DYSPNOEA [None]
